FAERS Safety Report 5330925-4 (Version None)
Quarter: 2007Q2

REPORT INFORMATION
  Report Type: 
  Country: None (occurrence: None)
  Receive Date: 20070522
  Receipt Date: 20070507
  Transmission Date: 20071010
  Serious: Yes (Other)
  Sender: FDA-Public Use
  Company Number: US-AMGEN-STX213858

PATIENT
  Sex: Female
  Weight: 64.5 kg

DRUGS (11)
  1. ENBREL [Suspect]
     Indication: RHEUMATOID ARTHRITIS
     Route: 058
     Dates: start: 20030101
  2. ADVIL [Concomitant]
     Route: 048
  3. ASPIRIN [Concomitant]
     Route: 048
  4. BENICAR [Concomitant]
     Route: 048
  5. HYDROCHLOROTHIAZIDE [Concomitant]
     Route: 048
  6. POTASSIUM CHLORIDE [Concomitant]
     Route: 048
  7. PREVACID [Concomitant]
     Route: 048
  8. ZETIA [Concomitant]
     Route: 048
  9. NORVASC [Concomitant]
  10. TRAZODONE HCL [Concomitant]
  11. HERBAL SUPPLEMENT [Concomitant]

REACTIONS (7)
  - COLITIS COLLAGENOUS [None]
  - COLONIC POLYP [None]
  - GASTRITIS [None]
  - HEPATIC ENZYME INCREASED [None]
  - HIATUS HERNIA [None]
  - OESOPHAGITIS [None]
  - PNEUMONIA [None]
